FAERS Safety Report 9123900 (Version 1)
Quarter: 2013Q1

REPORT INFORMATION
  Report Type: Spontaneous
  Country: US (occurrence: US)
  Receive Date: 20130116
  Receipt Date: 20130116
  Transmission Date: 20140127
  Serious: Yes (Hospitalization)
  Sender: FDA-Public Use
  Company Number: US-ELI_LILLY_AND_COMPANY-US201301001934

PATIENT
  Age: 86 Year
  Sex: Female

DRUGS (5)
  1. FORTEO [Suspect]
     Indication: OSTEOPOROSIS
     Dosage: 20 UG, QD
  2. MULTIPLE VITAMINS [Concomitant]
  3. ASPIRIN [Concomitant]
     Dosage: 81 MG, BID
  4. CALCIUM [Concomitant]
     Dosage: 500 MG, BID
  5. VITAMIN D [Concomitant]
     Dosage: 1000 MG, BID

REACTIONS (2)
  - Atrial fibrillation [Unknown]
  - Drug dose omission [Unknown]
